FAERS Safety Report 6666712-4 (Version None)
Quarter: 2010Q2

REPORT INFORMATION
  Report Type: 
  Country: None (occurrence: None)
  Receive Date: 20100402
  Receipt Date: 20100402
  Transmission Date: 20101027
  Serious: Yes (Other)
  Sender: FDA-Public Use
  Company Number: None

PATIENT
  Sex: Female
  Weight: 108.8633 kg

DRUGS (1)
  1. LAMOTRIGINE [Suspect]
     Dosage: 200MG 2 1/2 EVERY AM PO
     Route: 048
     Dates: start: 20100207

REACTIONS (5)
  - CRYING [None]
  - DYSPHORIA [None]
  - EMOTIONAL DISORDER [None]
  - PRODUCT SUBSTITUTION ISSUE [None]
  - WITHDRAWAL SYNDROME [None]
